FAERS Safety Report 8716418 (Version 2)
Quarter: 2013Q4

REPORT INFORMATION
  Report Type: Spontaneous
  Country: US (occurrence: US)
  Receive Date: 20120810
  Receipt Date: 20131106
  Transmission Date: 20140711
  Serious: Yes (Other)
  Sender: FDA-Public Use
  Company Number: US-009507513-1207USA011819

PATIENT
  Sex: Female

DRUGS (4)
  1. VICTRELIS [Suspect]
     Route: 048
  2. PEGASYS [Suspect]
  3. NEXIUM [Concomitant]
  4. EPOETIN [Concomitant]

REACTIONS (8)
  - Hepatitis C [Unknown]
  - Dysgeusia [Unknown]
  - Diarrhoea [Unknown]
  - Pain [Unknown]
  - Dizziness [Unknown]
  - Nausea [Unknown]
  - Blood pressure decreased [Unknown]
  - Anaemia [Unknown]
